FAERS Safety Report 25529050 (Version 1)
Quarter: 2025Q3

REPORT INFORMATION
  Report Type: Report from Study
  Country: CA (occurrence: CA)
  Receive Date: 20250708
  Receipt Date: 20250708
  Transmission Date: 20251021
  Serious: Yes (Other)
  Sender: NOVARTIS
  Company Number: CA-002147023-NVSC2025CA106935

PATIENT
  Age: 57 Year
  Sex: Female

DRUGS (1)
  1. LEQVIO [Suspect]
     Active Substance: INCLISIRAN SODIUM
     Indication: Type IIa hyperlipidaemia
     Route: 058
     Dates: start: 20250423

REACTIONS (3)
  - Chronic kidney disease [Unknown]
  - Blood creatine phosphokinase abnormal [Unknown]
  - Lipoprotein (a) abnormal [Unknown]
